FAERS Safety Report 6136889-8 (Version None)
Quarter: 2009Q1

REPORT INFORMATION
  Report Type: 
  Country: None (occurrence: None)
  Receive Date: 20090325
  Receipt Date: 20090325
  Transmission Date: 20090719
  Serious: Yes (Death, Hospitalization)
  Sender: FDA-Public Use
  Company Number: None

PATIENT
  Age: 19 Year
  Sex: Female
  Weight: 46 kg

DRUGS (7)
  1. CISPLATIN [Suspect]
     Indication: NASOPHARYNGEAL CANCER
     Dosage: 116 MG CYC IV
     Route: 042
     Dates: start: 20080612, end: 20080612
  2. FLUOROURACIL [Suspect]
     Indication: NASOPHARYNGEAL CANCER
     Dosage: 1450 TOTAL DOSE MG CYC IV
     Route: 042
     Dates: start: 20080612, end: 20080616
  3. ACETAMINOPHEN W/ CODEINE [Concomitant]
  4. ONDANSETRON [Concomitant]
  5. DEXTROSE 5% [Concomitant]
  6. MANNITOL [Concomitant]
  7. POTASSIUM CHLORIDE [Concomitant]

REACTIONS (7)
  - ABDOMINAL TENDERNESS [None]
  - DIHYDROPYRIMIDINE DEHYDROGENASE DEFICIENCY [None]
  - FEBRILE BONE MARROW APLASIA [None]
  - NEUTROPENIA [None]
  - PHARYNGITIS BACTERIAL [None]
  - SEPTIC SHOCK [None]
  - THERAPEUTIC AGENT TOXICITY [None]
